FAERS Safety Report 8379588-4 (Version None)
Quarter: 2012Q2

REPORT INFORMATION
  Report Type: 
  Country: None (occurrence: None)
  Receive Date: 20120523
  Receipt Date: 20120509
  Transmission Date: 20120825
  Serious: Yes (Other)
  Sender: FDA-Public Use
  Company Number: US-JNJFOC-20120510111

PATIENT
  Sex: Female
  Weight: 47.63 kg

DRUGS (3)
  1. LEVAQUIN [Suspect]
     Indication: DIVERTICULITIS
     Route: 042
     Dates: start: 20120426, end: 20120501
  2. LEVAQUIN [Suspect]
     Route: 048
     Dates: start: 20120502, end: 20120506
  3. FLAGYL [Concomitant]
     Indication: DIVERTICULITIS
     Route: 065
     Dates: start: 20120426

REACTIONS (4)
  - DRUG HYPERSENSITIVITY [None]
  - TOXICITY TO VARIOUS AGENTS [None]
  - TENDON PAIN [None]
  - TENDON DISORDER [None]
